FAERS Safety Report 25153473 (Version 1)
Quarter: 2025Q2

REPORT INFORMATION
  Report Type: Spontaneous
  Country: CA (occurrence: CA)
  Receive Date: 20250403
  Receipt Date: 20250403
  Transmission Date: 20250716
  Serious: Yes (Other)
  Sender: ORGANON
  Company Number: CA-ORGANON-O2504CAN000183

PATIENT
  Age: 43 Year
  Sex: Female

DRUGS (5)
  1. SINGULAIR [Suspect]
     Active Substance: MONTELUKAST SODIUM
     Indication: Cold urticaria
     Dosage: 20 MILLIGRAM, QD(1 EVERY 1 DAYS)
     Route: 065
  2. DIPHENHYDRAMINE [Suspect]
     Active Substance: DIPHENHYDRAMINE
     Indication: Cold urticaria
     Route: 065
  3. GAMMAGARD [Suspect]
     Active Substance: HUMAN IMMUNOGLOBULIN G
     Indication: Cold urticaria
     Dosage: 65 GRAM, QOW (1 EVERY 2 WEEKS) INTRAVENOUS (NOT OTHERWISE SPECIFIED)
     Route: 042
  4. KETOTIFEN [Suspect]
     Active Substance: KETOTIFEN
     Indication: Cold urticaria
     Dosage: 4 MILLIGRAM, BID (1 EVERY 0.5 DAYS)
     Route: 065
  5. RANITIDINE [Suspect]
     Active Substance: RANITIDINE
     Indication: Cold urticaria
     Dosage: 150 MILLIGRAM, QD (1 EVERY 1 DAYS)
     Route: 065

REACTIONS (1)
  - Product ineffective [Unknown]
